FAERS Safety Report 4927815-5 (Version None)
Quarter: 2006Q1

REPORT INFORMATION
  Report Type: 
  Country: None (occurrence: None)
  Receive Date: 20060222
  Receipt Date: 20060213
  Transmission Date: 20060701
  Serious: Yes (Hospitalization)
  Sender: FDA-Public Use
  Company Number: 430010M06USA

PATIENT
  Age: 56 Year
  Sex: Female
  Weight: 48.1 kg

DRUGS (11)
  1. NOVANTRONE [Suspect]
     Indication: ACUTE MYELOID LEUKAEMIA
     Dates: start: 20040615, end: 20040619
  2. CEP-701 INVESTIGATIONAL DRUG [Suspect]
     Dosage: 80 MG, 2 IN 1 DAYS, ORAL
     Route: 048
     Dates: start: 20040621
  3. ETOPOSIDE [Suspect]
     Dates: start: 20040615, end: 20040619
  4. CYTARABINE [Suspect]
     Dates: start: 20040615, end: 20040619
  5. LEVOFLOXACIN [Concomitant]
  6. VALTREX [Concomitant]
  7. ABH (ALL OTHER THERAPEUTIC PRODUCTS) [Concomitant]
  8. IMODIUM [Concomitant]
  9. ACETAMINOPHEN [Concomitant]
  10. DIPHENHYDRAMINE HCL [Concomitant]
  11. DARVON [Concomitant]

REACTIONS (11)
  - ASTHENIA [None]
  - CHILLS [None]
  - DIARRHOEA [None]
  - DIZZINESS [None]
  - ESCHERICHIA BACTERAEMIA [None]
  - FEBRILE NEUTROPENIA [None]
  - HAEMOGLOBIN DECREASED [None]
  - NAUSEA [None]
  - RED BLOOD CELL COUNT DECREASED [None]
  - VOMITING [None]
  - WHITE BLOOD CELL COUNT DECREASED [None]
